FAERS Safety Report 16228015 (Version 1)
Quarter: 2019Q2

REPORT INFORMATION
  Report Type: Spontaneous
  Country: US (occurrence: US)
  Receive Date: 20190423
  Receipt Date: 20190423
  Transmission Date: 20190711
  Serious: No
  Sender: FDA-Public Use
  Company Number: US-TEVA-2019-US-1037230

PATIENT
  Sex: Female

DRUGS (1)
  1. BACLOFEN. [Suspect]
     Active Substance: BACLOFEN
     Route: 065

REACTIONS (8)
  - Insomnia [Unknown]
  - Hallucination [Unknown]
  - Rash [Unknown]
  - Vomiting [Unknown]
  - Somnolence [Unknown]
  - Dizziness [Unknown]
  - Extra dose administered [Unknown]
  - Confusional state [Unknown]
